FAERS Safety Report 18124993 (Version 1)
Quarter: 2020Q3

REPORT INFORMATION
  Report Type: Spontaneous
  Country: CZ (occurrence: CZ)
  Receive Date: 20200807
  Receipt Date: 20200807
  Transmission Date: 20201103
  Serious: Yes (Hospitalization, Other)
  Sender: FDA-Public Use
  Company Number: NVSC2020CZ219702

PATIENT
  Sex: Female

DRUGS (2)
  1. MEKINIST [Suspect]
     Active Substance: TRAMETINIB DIMETHYL SULFOXIDE
     Indication: MELANOSIS
     Dosage: UNK
     Route: 065
  2. TAFINLAR [Suspect]
     Active Substance: DABRAFENIB MESYLATE
     Indication: MELANOSIS
     Dosage: UNK
     Route: 065

REACTIONS (4)
  - Altered state of consciousness [Unknown]
  - Hyponatraemia [Unknown]
  - Product use in unapproved indication [Unknown]
  - Hypochloraemia [Unknown]
